FAERS Safety Report 21199460 (Version 1)
Quarter: 2022Q3

REPORT INFORMATION
  Report Type: Report from Study
  Country: US (occurrence: US)
  Receive Date: 20220811
  Receipt Date: 20220811
  Transmission Date: 20221026
  Serious: Yes (Life-Threatening, Hospitalization)
  Sender: FDA-Public Use
  Company Number: US-ABBVIE-22K-163-4490984-00

PATIENT
  Sex: Male
  Weight: 77.180 kg

DRUGS (1)
  1. SKYRIZI [Suspect]
     Active Substance: RISANKIZUMAB-RZAA
     Indication: Psoriasis
     Route: 058
     Dates: start: 20220731

REACTIONS (5)
  - Rocky mountain spotted fever [Not Recovered/Not Resolved]
  - Urticaria [Recovered/Resolved]
  - Oropharyngeal discomfort [Unknown]
  - Arthropod bite [Unknown]
  - Blister [Recovering/Resolving]

NARRATIVE: CASE EVENT DATE: 20220101
